FAERS Safety Report 7817464-3 (Version None)
Quarter: 2011Q4

REPORT INFORMATION
  Report Type: 
  Country: None (occurrence: None)
  Receive Date: 20111013
  Receipt Date: 20110928
  Transmission Date: 20120403
  Serious: Yes (Other)
  Sender: FDA-Public Use
  Company Number: CA-006449

PATIENT
  Sex: Male

DRUGS (5)
  1. ASPIRIN [Concomitant]
  2. FIRMAGON [Suspect]
     Indication: PROSTATE CANCER
     Dosage: (240 MG 1X SUBCUTANEOUS, (80 MG 1X/MONTH SUBCUTANEOUS)
     Route: 058
     Dates: start: 20110803
  3. FIRMAGON [Suspect]
     Indication: PROSTATE CANCER
     Dosage: (240 MG 1X SUBCUTANEOUS, (80 MG 1X/MONTH SUBCUTANEOUS)
     Route: 058
     Dates: start: 20110705, end: 20110705
  4. ACETAMINOPHEN [Concomitant]
  5. CLOPIDOGREL [Concomitant]

REACTIONS (10)
  - DIZZINESS [None]
  - INJECTION SITE ERYTHEMA [None]
  - HOT FLUSH [None]
  - HEADACHE [None]
  - INJECTION SITE NODULE [None]
  - BACK PAIN [None]
  - POLLAKIURIA [None]
  - FATIGUE [None]
  - TESTICULAR ATROPHY [None]
  - ABDOMINAL PAIN [None]
